FAERS Safety Report 10292624 (Version 2)
Quarter: 2014Q3

REPORT INFORMATION
  Report Type: Spontaneous
  Country: US (occurrence: US)
  Receive Date: 20140710
  Receipt Date: 20140710
  Transmission Date: 20150326
  Serious: No
  Sender: FDA-Public Use
  Company Number: US-PURDUE-USA-2013-0107201

PATIENT
  Age: 52 Year
  Sex: Male

DRUGS (2)
  1. BUTRANS [Suspect]
     Active Substance: BUPRENORPHINE
     Dosage: 10 MG/HR, WEEKLY
     Route: 062
     Dates: start: 201212
  2. BUTRANS [Suspect]
     Active Substance: BUPRENORPHINE
     Indication: PRODUCT USED FOR UNKNOWN INDICATION
     Dosage: 20 MCG/HR, WEEKLY
     Route: 062
     Dates: start: 201212

REACTIONS (4)
  - Drug effect decreased [Unknown]
  - Application site scar [Unknown]
  - Application site vesicles [Unknown]
  - Application site irritation [Unknown]

NARRATIVE: CASE EVENT DATE: 201310
